FAERS Safety Report 9441162 (Version 2)
Quarter: 2013Q3

REPORT INFORMATION
  Report Type: Spontaneous
  Country: GB (occurrence: GB)
  Receive Date: 20130805
  Receipt Date: 20130830
  Transmission Date: 20140515
  Serious: Yes (Hospitalization)
  Sender: FDA-Public Use
  Company Number: GB-VERTEX PHARMACEUTICALS INC-2013-008518

PATIENT
  Age: 27 Year
  Sex: Male
  Weight: 98 kg

DRUGS (4)
  1. INCIVO [Suspect]
     Indication: HEPATITIS C
     Dosage: 750 MG, UNK
     Route: 048
     Dates: start: 20130528, end: 20130828
  2. PEGASYS [Concomitant]
     Indication: HEPATITIS C
     Dosage: DOSAGE FORM: UNSPECIFIED
     Route: 058
     Dates: start: 20130528
  3. RIBAVIRIN [Concomitant]
     Indication: CHRONIC HEPATITIS C
     Dosage: DOSAGE FORM: UNSPECIFIED
     Route: 048
     Dates: start: 20130528
  4. RIBAVIRIN [Concomitant]
     Indication: HEPATITIS C

REACTIONS (1)
  - Appendicitis [Recovered/Resolved]
